FAERS Safety Report 9482011 (Version 2)
Quarter: 2013Q3

REPORT INFORMATION
  Report Type: Report from Study
  Country: MX (occurrence: MX)
  Receive Date: 20130828
  Receipt Date: 20130828
  Transmission Date: 20140515
  Serious: Yes (Death, Disabling)
  Sender: FDA-Public Use
  Company Number: MX-ROCHE-1199579

PATIENT
  Age: 53 Year
  Sex: Female
  Weight: 47 kg

DRUGS (2)
  1. XELODA [Suspect]
     Indication: BREAST CANCER METASTATIC
     Route: 048
     Dates: start: 201206, end: 201301
  2. ZOMETA [Concomitant]
     Indication: METASTASES TO BONE
     Route: 065

REACTIONS (10)
  - Disease progression [Fatal]
  - Asthenia [Recovering/Resolving]
  - Arthralgia [Recovering/Resolving]
  - Anaemia [Unknown]
  - Vomiting [Recovering/Resolving]
  - Diarrhoea [Recovering/Resolving]
  - Dry mouth [Recovering/Resolving]
  - Stomatitis [Recovering/Resolving]
  - Nausea [Recovering/Resolving]
  - Depression [Not Recovered/Not Resolved]
